FAERS Safety Report 25338028 (Version 4)
Quarter: 2025Q2

REPORT INFORMATION
  Report Type: Spontaneous
  Country: US (occurrence: US)
  Receive Date: 20250520
  Receipt Date: 20250616
  Transmission Date: 20250717
  Serious: No
  Sender: ABBVIE
  Company Number: US-ABBVIE-6281973

PATIENT
  Sex: Male

DRUGS (1)
  1. HUMIRA [Suspect]
     Active Substance: ADALIMUMAB
     Indication: Crohn^s disease
     Dosage: DURATION SIX YEARS?FORM STRENGTH: 80 MG
     Route: 058

REACTIONS (2)
  - Colitis [Unknown]
  - Therapeutic product effect decreased [Unknown]
